FAERS Safety Report 4412416-8 (Version None)
Quarter: 2004Q3

REPORT INFORMATION
  Report Type: 
  Country: None (occurrence: None)
  Receive Date: 20040727
  Receipt Date: 20040714
  Transmission Date: 20050211
  Serious: Yes (Hospitalization)
  Sender: FDA-Public Use
  Company Number: 04P-163-0266939-00

PATIENT
  Age: 87 Year
  Sex: Male
  Weight: 58.9676 kg

DRUGS (3)
  1. OMNICEF [Suspect]
     Indication: ABSCESS
     Dosage: 300 MG, 2 IN 1 D, PER ORAL
     Route: 048
     Dates: start: 20040713
  2. FOLIC ACID [Concomitant]
  3. ASPIRIN [Concomitant]

REACTIONS (1)
  - BLOODY DISCHARGE [None]
